FAERS Safety Report 5220071-2 (Version None)
Quarter: 2007Q1

REPORT INFORMATION
  Report Type: 
  Country: None (occurrence: None)
  Receive Date: 20070124
  Receipt Date: 20070124
  Transmission Date: 20070707
  Serious: Yes (Other)
  Sender: FDA-Public Use
  Company Number: None

PATIENT
  Age: 56 Year
  Sex: Male
  Weight: 69.8539 kg

DRUGS (11)
  1. CLINDAMYCIN [Suspect]
     Indication: INFECTION
     Dosage: 600 MG IV TID
     Route: 042
     Dates: start: 20061020, end: 20061026
  2. OXYCODONE AND ACETAMINOPHEN [Concomitant]
  3. AMITRIPTYLINE HCL [Concomitant]
  4. ASCORBIC ACID [Concomitant]
  5. BACLOFEN [Concomitant]
  6. DIAZEPAM [Concomitant]
  7. DOCUSATE MINI ENEMA, ENEMA [Concomitant]
  8. GABAPENTIN [Concomitant]
  9. LIDOCAINE OINT [Concomitant]
  10. NITROGLYCERIN AEROSOL [Concomitant]
  11. OXYBUTYNIN CHLORIDE [Concomitant]

REACTIONS (1)
  - URTICARIA GENERALISED [None]
